FAERS Safety Report 15322242 (Version 1)
Quarter: 2018Q3

REPORT INFORMATION
  Report Type: Spontaneous
  Country: TH (occurrence: TH)
  Receive Date: 20180827
  Receipt Date: 20180827
  Transmission Date: 20181010
  Serious: Yes (Hospitalization, Other)
  Sender: FDA-Public Use
  Company Number: TH-PFIZER INC-2018309626

PATIENT
  Age: 67 Year
  Sex: Male

DRUGS (1)
  1. XALKORI [Suspect]
     Active Substance: CRIZOTINIB
     Dosage: 500 MG
     Dates: start: 20170216

REACTIONS (4)
  - Anaemia [Unknown]
  - Flank pain [Unknown]
  - Renal cyst haemorrhage [Recovered/Resolved]
  - Pulmonary embolism [Unknown]

NARRATIVE: CASE EVENT DATE: 20170825
